FAERS Safety Report 9404036 (Version 2)
Quarter: 2013Q3

REPORT INFORMATION
  Report Type: Spontaneous
  Country: IN (occurrence: None)
  Receive Date: 20130712
  Receipt Date: 20130723
  Transmission Date: 20140515
  Serious: Yes (Death)
  Sender: FDA-Public Use
  Company Number: NPIL/ISO/H/2013/52

PATIENT
  Age: 25 Year
  Sex: Male

DRUGS (5)
  1. ISOFLURANE [Suspect]
     Indication: ANAESTHESIA
  2. FENTANYL [Concomitant]
  3. THIOPENTONE [Concomitant]
  4. VECUROMNIUM [Concomitant]
  5. NITROUS OXIDE [Concomitant]

REACTIONS (7)
  - Malignant hypertension [None]
  - Ventricular extrasystoles [None]
  - Bradycardia [None]
  - Cardiac arrest [None]
  - Cardiac arrest [None]
  - Cardiomegaly [None]
  - Autonomic dysreflexia [None]
